FAERS Safety Report 16397316 (Version 1)
Quarter: 2019Q2

REPORT INFORMATION
  Report Type: Spontaneous
  Country: FR (occurrence: FR)
  Receive Date: 20190606
  Receipt Date: 20190606
  Transmission Date: 20190711
  Serious: Yes (Hospitalization)
  Sender: FDA-Public Use
  Company Number: FR-AUROBINDO-AUR-APL-2019-031272

PATIENT

DRUGS (4)
  1. BISOPROLOL [Suspect]
     Active Substance: BISOPROLOL
     Indication: MYOCARDIAL ISCHAEMIA
     Dosage: 1.25 MILLIGRAM, ONCE A DAY(1.25MG LE MATIN)
     Route: 048
  2. PROPYLEX [Suspect]
     Active Substance: PROPYLTHIOURACIL
     Indication: SECONDARY HYPERTHYROIDISM
     Dosage: UNK
     Route: 048
     Dates: start: 201902, end: 20190510
  3. COUMADINE [Suspect]
     Active Substance: WARFARIN SODIUM
     Indication: TACHYARRHYTHMIA
     Dosage: 2 MILLIGRAM, ONCE A DAY(2 MG LE SOIR)
     Route: 048
  4. FUROSEMIDE. [Suspect]
     Active Substance: FUROSEMIDE
     Indication: HYPERTENSION
     Dosage: 40 MILLIGRAM, ONCE A DAY(40 MG LE MATIN)
     Route: 048

REACTIONS (2)
  - Erythema [Recovering/Resolving]
  - Oedema peripheral [Not Recovered/Not Resolved]

NARRATIVE: CASE EVENT DATE: 20190422
